FAERS Safety Report 24152806 (Version 4)
Quarter: 2025Q1

REPORT INFORMATION
  Report Type: Spontaneous
  Country: HN (occurrence: HN)
  Receive Date: 20240730
  Receipt Date: 20250122
  Transmission Date: 20250408
  Serious: No
  Sender: PFIZER
  Company Number: HN-PFIZER INC-PV202400096998

PATIENT
  Age: 11 Year
  Sex: Male

DRUGS (1)
  1. GENOTROPIN [Suspect]
     Active Substance: SOMATROPIN
     Dosage: 0.8 MG, DAILY

REACTIONS (4)
  - Device use error [Unknown]
  - Drug dose omission by device [Unknown]
  - Device physical property issue [Unknown]
  - Device leakage [Unknown]
